FAERS Safety Report 10440810 (Version 1)
Quarter: 2014Q3

REPORT INFORMATION
  Report Type: Spontaneous
  Country: US (occurrence: None)
  Receive Date: 20140908
  Receipt Date: 20140908
  Transmission Date: 20150326
  Serious: Yes (Hospitalization, Disabling, Other)
  Sender: FDA-Public Use
  Company Number: None

PATIENT
  Age: 63 Year
  Sex: Female
  Weight: 77.11 kg

DRUGS (1)
  1. DOXYCYCLINE. [Suspect]
     Active Substance: DOXYCYCLINE
     Indication: ABSCESS
     Dosage: 100 MG ONCE DAILY TAKEN BY MOUTH
     Route: 048

REACTIONS (6)
  - Adverse reaction [None]
  - Weight decreased [None]
  - Oesophageal candidiasis [None]
  - Pain [None]
  - Anxiety [None]
  - Lymphoma [None]

NARRATIVE: CASE EVENT DATE: 20130415
